FAERS Safety Report 4383076-X (Version None)
Quarter: 2004Q2

REPORT INFORMATION
  Report Type: 
  Country: None (occurrence: None)
  Receive Date: 20040618
  Receipt Date: 20040609
  Transmission Date: 20050107
  Serious: Yes (Hospitalization)
  Sender: FDA-Public Use
  Company Number: 2004-02579

PATIENT
  Age: 60 Year
  Sex: Female

DRUGS (2)
  1. TRIAMTERENE AND HYDROCHLOROTHIAZIDE [Suspect]
     Indication: HYPERTENSION
     Dosage: ORAL
     Route: 048
  2. MAXZIDE [Suspect]
     Indication: HYPERTENSION
     Dosage: ORAL
     Route: 048
     Dates: start: 20001206, end: 20010216

REACTIONS (11)
  - BONE EROSION [None]
  - CARDIAC MURMUR [None]
  - DRUG INEFFECTIVE [None]
  - EYE INFECTION [None]
  - FRACTURE [None]
  - HAEMORRHAGE [None]
  - MULTIPLE MYELOMA [None]
  - PAIN [None]
  - RENAL IMPAIRMENT [None]
  - VEIN DISORDER [None]
  - WEIGHT DECREASED [None]
